FAERS Safety Report 23565786 (Version 1)
Quarter: 2024Q1

REPORT INFORMATION
  Report Type: Spontaneous
  Country: US (occurrence: None)
  Receive Date: 20240224
  Receipt Date: 20240224
  Transmission Date: 20240410
  Serious: Yes (Hospitalization)
  Sender: FDA-Public Use
  Company Number: None

PATIENT
  Age: 63 Year
  Sex: Female
  Weight: 117.9 kg

DRUGS (1)
  1. TAXOL [Suspect]
     Active Substance: PACLITAXEL

REACTIONS (3)
  - Cough [None]
  - Pyrexia [None]
  - Hypoxia [None]

NARRATIVE: CASE EVENT DATE: 20230105
